FAERS Safety Report 13060660 (Version 3)
Quarter: 2017Q1

REPORT INFORMATION
  Report Type: Spontaneous
  Country: JP (occurrence: JP)
  Receive Date: 20161224
  Receipt Date: 20170322
  Transmission Date: 20170428
  Serious: Yes (Other)
  Sender: FDA-Public Use
  Company Number: JP-AMGEN-JPNSP2016181243

PATIENT
  Age: 81 Year
  Sex: Female

DRUGS (4)
  1. PRALIA [Suspect]
     Active Substance: DENOSUMAB
     Indication: PRODUCT USED FOR UNKNOWN INDICATION
     Dosage: 60 MG, Q6MO
     Route: 058
     Dates: start: 20150507, end: 201604
  2. MEDROL [Concomitant]
     Active Substance: METHYLPREDNISOLONE
     Dosage: 3 MG, BID
     Route: 048
     Dates: start: 2009, end: 20160412
  3. RHEUMATREX [Concomitant]
     Active Substance: METHOTREXATE SODIUM
     Dosage: 4 MG/WEEK, BID
     Route: 048
     Dates: start: 2009
  4. METOLATE [Concomitant]
     Active Substance: METHOTREXATE
     Dosage: 4MG/WEEK, BID
     Route: 048
     Dates: end: 201509

REACTIONS (1)
  - Osteomyelitis [Recovered/Resolved]
